FAERS Safety Report 5104862-4 (Version None)
Quarter: 2006Q3

REPORT INFORMATION
  Report Type: 
  Country: None (occurrence: None)
  Receive Date: 20060914
  Receipt Date: 20060825
  Transmission Date: 20061208
  Serious: Yes (Other)
  Sender: FDA-Public Use
  Company Number: GB-GLAXOSMITHKLINE-B0435915A

PATIENT
  Age: 59 Year
  Sex: Female
  Weight: 86 kg

DRUGS (3)
  1. SEROXAT [Suspect]
     Indication: DEPRESSION
     Route: 048
     Dates: start: 19990913, end: 20060701
  2. LEVOTHYROXINE SODIUM [Concomitant]
  3. UNKNOWN DRUG [Concomitant]

REACTIONS (2)
  - AGGRESSION [None]
  - MOOD SWINGS [None]
